FAERS Safety Report 4445685-9 (Version None)
Quarter: 2004Q3

REPORT INFORMATION
  Report Type: 
  Country: None (occurrence: None)
  Receive Date: 20040910
  Receipt Date: 20040903
  Transmission Date: 20050211
  Serious: Yes (Other)
  Sender: FDA-Public Use
  Company Number: JP-JNJFOC-20040702328

PATIENT
  Sex: Female

DRUGS (31)
  1. RISPERDAL [Suspect]
     Route: 049
  2. RISPERDAL [Suspect]
     Route: 049
  3. RISPERDAL [Suspect]
     Route: 049
  4. RISPERDAL [Suspect]
     Route: 049
  5. RISPERDAL [Suspect]
     Route: 049
  6. RISPERDAL [Suspect]
     Route: 049
  7. RISPERDAL [Suspect]
     Indication: SCHIZOPHRENIA
     Route: 049
  8. FLUNITRAZEPAM [Concomitant]
     Route: 049
  9. TRIHEXYPHENIDYL HYDROCHLORIDE [Concomitant]
     Route: 049
     Dates: start: 20031001
  10. TRIHEXYPHENIDYL HYDROCHLORIDE [Concomitant]
     Route: 049
     Dates: start: 20031001
  11. TRIHEXYPHENIDYL HYDROCHLORIDE [Concomitant]
     Route: 049
     Dates: start: 20031001
  12. TRIHEXYPHENIDYL HYDROCHLORIDE [Concomitant]
     Route: 049
     Dates: start: 20031001
  13. ETIZOLAM [Concomitant]
     Route: 049
     Dates: start: 20031006, end: 20031125
  14. LORAZEPAM [Concomitant]
     Route: 049
  15. LORAZEPAM [Concomitant]
     Route: 049
  16. LORAZEPAM [Concomitant]
     Route: 049
  17. LORAZEPAM [Concomitant]
     Route: 049
  18. LORAZEPAM [Concomitant]
     Route: 049
  19. OLANZAPINE [Concomitant]
     Route: 049
     Dates: start: 20031006
  20. OLANZAPINE [Concomitant]
     Route: 049
     Dates: start: 20031006
  21. QUAZEPAM [Concomitant]
     Route: 049
     Dates: start: 20031224
  22. QUAZEPAM [Concomitant]
     Route: 049
     Dates: start: 20031224
  23. QUAZEPAM [Concomitant]
     Route: 049
     Dates: start: 20031224
  24. QUAZEPAM [Concomitant]
     Route: 049
     Dates: start: 20031224
  25. SENNOSIDE [Concomitant]
  26. SENNOSIDE [Concomitant]
  27. BROTIZOLAM [Concomitant]
  28. BROTIZOLAM [Concomitant]
  29. MAGNESIUM OXIDE [Concomitant]
  30. MAGNESIUM OXIDE [Concomitant]
  31. MAGNESIUM OXIDE [Concomitant]

REACTIONS (10)
  - AKATHISIA [None]
  - CONDITION AGGRAVATED [None]
  - CONSTIPATION [None]
  - EXTRAPYRAMIDAL DISORDER [None]
  - LEUKOPENIA [None]
  - MUSCLE RIGIDITY [None]
  - PSYCHIATRIC SYMPTOM [None]
  - THIRST [None]
  - TREMOR [None]
  - WEIGHT INCREASED [None]
